FAERS Safety Report 8287007-1 (Version None)
Quarter: 2012Q2

REPORT INFORMATION
  Report Type: 
  Country: None (occurrence: None)
  Receive Date: 20120416
  Receipt Date: 20120409
  Transmission Date: 20120825
  Serious: Yes (Other)
  Sender: FDA-Public Use
  Company Number: TR-BAYER-2011-060435

PATIENT
  Age: 40 Year
  Sex: Male
  Weight: 86 kg

DRUGS (3)
  1. BETASERON [Suspect]
     Indication: MULTIPLE SCLEROSIS
     Dosage: 8 MIU, UNK
     Route: 058
  2. LIORESAL [Concomitant]
     Route: 048
  3. IBRUPROFEN [Concomitant]
     Dosage: 600 MG, UNK
     Route: 048

REACTIONS (5)
  - UNEVALUABLE EVENT [None]
  - SPEECH DISORDER [None]
  - BALANCE DISORDER [None]
  - ASTHENIA [None]
  - MUSCLE CONTRACTIONS INVOLUNTARY [None]
